FAERS Safety Report 5104825-9 (Version None)
Quarter: 2006Q3

REPORT INFORMATION
  Report Type: 
  Country: None (occurrence: None)
  Receive Date: 20060914
  Receipt Date: 20060904
  Transmission Date: 20061208
  Serious: Yes (Hospitalization)
  Sender: FDA-Public Use
  Company Number: GB-JNJFOC-20060603842

PATIENT
  Sex: Female
  Weight: 90 kg

DRUGS (8)
  1. TOPAMAX [Suspect]
     Route: 048
  2. TOPAMAX [Suspect]
     Route: 048
  3. TOPAMAX [Suspect]
     Indication: EPILEPSY
     Route: 048
  4. PREGABALIN [Concomitant]
     Indication: EPILEPSY
     Route: 048
  5. VALPROATE SODIUM [Concomitant]
     Indication: EPILEPSY
     Dosage: 1000MG MORNING, 1300MG NIGHT
     Route: 048
  6. CLOBAZAM [Concomitant]
     Indication: EPILEPSY
     Dosage: TAKEN AT NIGHT
     Route: 048
  7. RISPERIDONE [Concomitant]
     Indication: ANXIETY
     Route: 048
  8. ZONISAMIDE [Concomitant]
     Indication: EPILEPSY
     Dosage: 25MG MORNING, 50MG NIGHT
     Route: 048

REACTIONS (3)
  - CLOSTRIDIAL INFECTION [None]
  - DIARRHOEA [None]
  - STATUS EPILEPTICUS [None]
